FAERS Safety Report 7385996-0 (Version None)
Quarter: 2011Q1

REPORT INFORMATION
  Report Type: 
  Country: None (occurrence: None)
  Receive Date: 20110331
  Receipt Date: 20100927
  Transmission Date: 20110831
  Serious: Yes (Other)
  Sender: FDA-Public Use
  Company Number: US-BAYER-201018875NA

PATIENT
  Sex: Female

DRUGS (12)
  1. INDERAL [Concomitant]
     Dosage: MENTIONED HAD BEEN TAKING IN 2008
     Route: 048
  2. YAZ [Suspect]
     Route: 048
  3. MOTRIN [Concomitant]
     Route: 048
     Dates: start: 20030401, end: 20031012
  4. MIDRIN [Concomitant]
     Dosage: MENTIONED HAD BEEN TAKING IN 2008
  5. INDERAL [Concomitant]
     Route: 048
     Dates: start: 20030915, end: 20050713
  6. VITAMIN D [Concomitant]
     Dosage: MENTIONED HAD BEEN TAKING IN 2008 FOR 2 WEEKS
     Route: 042
  7. YASMIN [Suspect]
     Dosage: ACCORDING TO MEDICAL RECORDS
     Route: 048
     Dates: start: 20030101
  8. YASMIN [Suspect]
     Dosage: ACCORDING TO PHARMACY RECORDS
     Route: 048
     Dates: start: 20061119, end: 20071119
  9. ORTHO TRI-CYCLEN [Concomitant]
     Dosage: 28 TABLETS
     Dates: start: 20030718, end: 20040920
  10. OCELLA [Suspect]
     Route: 048
     Dates: start: 20080918
  11. ADVIL LIQUI-GELS [Concomitant]
  12. PERCOCET [Concomitant]
     Dosage: MENTIONED HAD BEEN TAKING IN 2008

REACTIONS (20)
  - MUSCLE TIGHTNESS [None]
  - ABDOMINAL PAIN UPPER [None]
  - CHEST DISCOMFORT [None]
  - MENSTRUATION IRREGULAR [None]
  - FOOD INTOLERANCE [None]
  - PALPITATIONS [None]
  - TRANSIENT ISCHAEMIC ATTACK [None]
  - HYPERTENSION [None]
  - CHEST PAIN [None]
  - CHOLECYSTITIS CHRONIC [None]
  - MUSCULOSKELETAL CHEST PAIN [None]
  - HEADACHE [None]
  - HAEMATOCHEZIA [None]
  - ABDOMINAL PAIN [None]
  - VOMITING [None]
  - BILE DUCT OBSTRUCTION [None]
  - CHOLELITHIASIS [None]
  - GASTRITIS [None]
  - DYSPNOEA [None]
  - MUSCULOSKELETAL PAIN [None]
